FAERS Safety Report 6596161-9 (Version None)
Quarter: 2010Q1

REPORT INFORMATION
  Report Type: 
  Country: None (occurrence: None)
  Receive Date: 20100223
  Receipt Date: 20100219
  Transmission Date: 20100710
  Serious: Yes (Hospitalization)
  Sender: FDA-Public Use
  Company Number: JP-ROCHE-577135

PATIENT
  Sex: Female
  Weight: 56.5 kg

DRUGS (17)
  1. BEVACIZUMAB [Suspect]
     Indication: BREAST CANCER
     Dosage: DOSAGE FORM REPORTED AS 950 MG
     Route: 042
     Dates: start: 20080630, end: 20080630
  2. BEVACIZUMAB [Suspect]
     Dosage: LAST DOSE PRIOR TO SAE: 03 SEP 2008
     Route: 042
     Dates: start: 20080812
  3. EPIRUBICIN [Suspect]
     Indication: BREAST CANCER
     Dosage: DOSAGE FORM REPORTED AS 143 MG
     Route: 042
     Dates: start: 20080630, end: 20080630
  4. EPIRUBICIN [Suspect]
     Dosage: LAST DOSE PRIOR TO SAE: 24 SEP 2008
     Route: 042
     Dates: start: 20080812
  5. CYCLOPHOSPHAMIDE [Suspect]
     Indication: BREAST CANCER
     Dosage: DOSAGE FORM REPORTED AS 955 MG
     Route: 042
     Dates: start: 20080630, end: 20080630
  6. CYCLOPHOSPHAMIDE [Suspect]
     Dosage: LAST DOSE PRIOR TO SAE: 24 SEPT 2008
     Route: 042
     Dates: start: 20080812
  7. DOCETAXEL [Suspect]
     Indication: BREAST CANCER
     Dosage: DRUG NAME: DOCETAXEL HYDRATE, DOSE FORM: 109 MG, LAST DOSE PRIOR TO SAE: 07 JAN 2009
     Route: 042
     Dates: start: 20081022
  8. LAC-B [Concomitant]
     Dates: start: 20030101
  9. MAGNESIUM OXIDE [Concomitant]
     Dates: start: 20030101
  10. ZOLPIDEM [Concomitant]
  11. ZOLPIDEM [Concomitant]
     Dates: start: 20081212
  12. TRIMEBUTINE [Concomitant]
     Dates: start: 19980101
  13. TRIAZOLAM [Concomitant]
  14. N-METHYLSCOPOLAMINE METHYLSULFATE [Concomitant]
     Dosage: DRUG REPORTED AS METYL SCOPOLAMINE METYLSULFATE
  15. HYALURONATE SODIUM [Concomitant]
     Dates: start: 20080813
  16. ETIZOLAM [Concomitant]
     Dates: start: 20091028
  17. KETOPROFEN [Concomitant]
     Dates: start: 20081124

REACTIONS (1)
  - DIVERTICULITIS INTESTINAL HAEMORRHAGIC [None]
